FAERS Safety Report 7455985-6 (Version None)
Quarter: 2011Q2

REPORT INFORMATION
  Report Type: 
  Country: None (occurrence: None)
  Receive Date: 20110503
  Receipt Date: 20110426
  Transmission Date: 20111010
  Serious: Yes (Hospitalization)
  Sender: FDA-Public Use
  Company Number: US-MERCK-1010USA01163

PATIENT
  Age: 71 Year
  Sex: Female

DRUGS (4)
  1. FOSAMAX [Suspect]
     Indication: BONE DISORDER
     Route: 048
     Dates: start: 19981001, end: 20090401
  2. BONIVA [Suspect]
     Route: 065
     Dates: start: 20080601, end: 20100701
  3. ATENOLOL [Concomitant]
     Indication: CARDIAC DISORDER
     Route: 065
     Dates: start: 19880101
  4. ESTRADIOL [Concomitant]
     Indication: HORMONE THERAPY
     Route: 065
     Dates: start: 19840101

REACTIONS (48)
  - BLOOD POTASSIUM DECREASED [None]
  - HYPERTENSION [None]
  - GASTROINTESTINAL DISORDER [None]
  - IMPAIRED HEALING [None]
  - UPPER LIMB FRACTURE [None]
  - ALANINE AMINOTRANSFERASE ABNORMAL [None]
  - DIARRHOEA [None]
  - FALL [None]
  - HYPOMAGNESAEMIA [None]
  - BLOOD CHOLESTEROL INCREASED [None]
  - PAIN [None]
  - OSTEOPENIA [None]
  - SYNCOPE [None]
  - VENOUS INJURY [None]
  - CONTUSION [None]
  - GALLBLADDER DISORDER [None]
  - LOW TURNOVER OSTEOPATHY [None]
  - ANAEMIA POSTOPERATIVE [None]
  - CORONARY ARTERY DISEASE [None]
  - URINARY TRACT INFECTION ENTEROCOCCAL [None]
  - GASTROENTERITIS [None]
  - NOCTURIA [None]
  - MYALGIA [None]
  - FATIGUE [None]
  - SKIN DISORDER [None]
  - HEAD INJURY [None]
  - CAROTIDYNIA [None]
  - HAEMORRHAGE [None]
  - RADIUS FRACTURE [None]
  - FIBROCYSTIC BREAST DISEASE [None]
  - FEMUR FRACTURE [None]
  - ABDOMINAL PAIN [None]
  - HAEMATOMA [None]
  - VOMITING [None]
  - BACK PAIN [None]
  - NAUSEA [None]
  - CATARACT [None]
  - HYPOTHYROIDISM [None]
  - SOMNOLENCE [None]
  - HYPERSENSITIVITY [None]
  - TEMPERATURE INTOLERANCE [None]
  - GASTROOESOPHAGEAL REFLUX DISEASE [None]
  - ILEUS [None]
  - PANCREATITIS [None]
  - LOBAR PNEUMONIA [None]
  - INTESTINAL OBSTRUCTION [None]
  - CHEST PAIN [None]
  - ASTHENIA [None]
